FAERS Safety Report 7068551-1 (Version None)
Quarter: 2010Q4

REPORT INFORMATION
  Report Type: 
  Country: None (occurrence: None)
  Receive Date: 20101028
  Receipt Date: 20101018
  Transmission Date: 20110411
  Serious: Yes (Other)
  Sender: FDA-Public Use
  Company Number: CA-JNJFOC-20101005579

PATIENT
  Sex: Male
  Weight: 75 kg

DRUGS (4)
  1. REMICADE [Suspect]
     Indication: CROHN'S DISEASE
     Route: 042
  2. JANUVIA [Concomitant]
  3. METFORMIN [Concomitant]
  4. LASIX [Concomitant]

REACTIONS (4)
  - DRY SKIN [None]
  - HAEMOGLOBIN DECREASED [None]
  - MELAENA [None]
  - RASH [None]
